FAERS Safety Report 8414615-7 (Version None)
Quarter: 2012Q2

REPORT INFORMATION
  Report Type: 
  Country: None (occurrence: None)
  Receive Date: 20120605
  Receipt Date: 20120531
  Transmission Date: 20120825
  Serious: Yes (Death, Hospitalization, Other)
  Sender: FDA-Public Use
  Company Number: RO-ABBOTT-12P-135-0893201-00

PATIENT
  Sex: Male
  Weight: 90 kg

DRUGS (6)
  1. ASPIRIN [Concomitant]
     Indication: PRODUCT USED FOR UNKNOWN INDICATION
     Dates: start: 20111124, end: 20111129
  2. SIMVASTATIN [Concomitant]
     Indication: PRODUCT USED FOR UNKNOWN INDICATION
     Dates: start: 20111124, end: 20111129
  3. METOPROLOL TARTRATE [Concomitant]
     Indication: PRODUCT USED FOR UNKNOWN INDICATION
     Dates: start: 20111124, end: 20111129
  4. COLCHICINE [Suspect]
     Indication: PRODUCT USED FOR UNKNOWN INDICATION
  5. HUMIRA [Suspect]
     Indication: PSORIASIS
     Route: 058
     Dates: start: 20110801, end: 20111101
  6. AMIODARONE HCL [Concomitant]
     Indication: PRODUCT USED FOR UNKNOWN INDICATION
     Dates: start: 20111124, end: 20111129

REACTIONS (41)
  - ATRIOVENTRICULAR BLOCK [None]
  - DRUG INTOLERANCE [None]
  - FATIGUE [None]
  - PYREXIA [None]
  - PROSTATIC ADENOMA [None]
  - PURPURA [None]
  - CORONARY ARTERY DISEASE [None]
  - CYTOLYTIC HEPATITIS [None]
  - CHEST PAIN [None]
  - RENAL FAILURE ACUTE [None]
  - ASCITES [None]
  - PERICARDITIS CONSTRICTIVE [None]
  - DYSPNOEA EXERTIONAL [None]
  - TRICUSPID VALVE INCOMPETENCE [None]
  - LYMPHADENOPATHY [None]
  - BLOOD UREA INCREASED [None]
  - IRON DEFICIENCY ANAEMIA [None]
  - CARDIAC FAILURE CONGESTIVE [None]
  - ANXIETY [None]
  - ARTERIOSCLEROSIS [None]
  - RENAL CYST [None]
  - CARDIOPULMONARY FAILURE [None]
  - HEART RATE INCREASED [None]
  - ATRIAL FIBRILLATION [None]
  - PERICARDIAL EFFUSION [None]
  - CARDIAC ANEURYSM [None]
  - PLEURISY [None]
  - CHILLS [None]
  - ATRIAL FLUTTER [None]
  - BUNDLE BRANCH BLOCK RIGHT [None]
  - MITRAL VALVE INCOMPETENCE [None]
  - LUNG NEOPLASM [None]
  - HYPERHIDROSIS [None]
  - PALLOR [None]
  - HYPERKALAEMIA [None]
  - COUGH [None]
  - HEPATIC CIRRHOSIS [None]
  - PETECHIAE [None]
  - PLEURAL EFFUSION [None]
  - DYSPNOEA [None]
  - MALAISE [None]
